FAERS Safety Report 8268884-7 (Version None)
Quarter: 2012Q2

REPORT INFORMATION
  Report Type: 
  Country: None (occurrence: None)
  Receive Date: 20120409
  Receipt Date: 20120403
  Transmission Date: 20120825
  Serious: Yes (Hospitalization, Other)
  Sender: FDA-Public Use
  Company Number: US-PFIZER INC-2012084795

PATIENT
  Sex: Female
  Weight: 104.31 kg

DRUGS (9)
  1. LYRICA [Suspect]
     Indication: RESTLESS LEGS SYNDROME
  2. ALPRAZOLAM [Suspect]
     Dosage: 2 MG, 3X/DAY
     Route: 048
  3. NEURONTIN [Suspect]
     Dosage: UNK, INCREASED
     Dates: end: 20120101
  4. NEURONTIN [Suspect]
     Indication: NERVE INJURY
     Dosage: UNK
     Route: 048
  5. METHADONE [Concomitant]
     Indication: PAIN
     Dosage: UNK
  6. NEXIUM [Concomitant]
     Dosage: UNK
  7. ALPRAZOLAM [Suspect]
     Indication: ANXIETY
     Dosage: 0.25 MG, 1X/DAY
     Route: 048
  8. LYRICA [Suspect]
     Indication: NERVE INJURY
     Dosage: 50 MG, 1X/DAY
     Route: 048
     Dates: end: 20110101
  9. ALPRAZOLAM [Suspect]
     Dosage: 0.25 MG, 1X/DAY
     Route: 048

REACTIONS (14)
  - INSOMNIA [None]
  - DRUG INEFFECTIVE [None]
  - CARDIAC DISCOMFORT [None]
  - DYSPEPSIA [None]
  - OVERDOSE [None]
  - ANGINA PECTORIS [None]
  - HYPERHIDROSIS [None]
  - INJURY [None]
  - BLOOD POTASSIUM DECREASED [None]
  - SEDATION [None]
  - AMNESIA [None]
  - DRUG WITHDRAWAL SYNDROME [None]
  - FEELING ABNORMAL [None]
  - ABDOMINAL DISCOMFORT [None]
